FAERS Safety Report 19959880 (Version 1)
Quarter: 2021Q4

REPORT INFORMATION
  Report Type: Spontaneous
  Country: US (occurrence: US)
  Receive Date: 20211015
  Receipt Date: 20211015
  Transmission Date: 20220304
  Serious: Yes (Other)
  Sender: FDA-Public Use
  Company Number: US-GLAXOSMITHKLINE-US2021GSK214250

PATIENT
  Sex: Female

DRUGS (2)
  1. RANITIDINE [Suspect]
     Active Substance: RANITIDINE
     Indication: Colon cancer
     Dosage: UNK, QD
     Route: 065
     Dates: start: 198001, end: 201301
  2. RANITIDINE [Suspect]
     Active Substance: RANITIDINE
     Indication: Colon cancer
     Dosage: UNK, QD
     Route: 065
     Dates: start: 198001, end: 201301

REACTIONS (2)
  - Colon cancer [Unknown]
  - Colon cancer [Unknown]
